FAERS Safety Report 25065226 (Version 2)
Quarter: 2025Q2

REPORT INFORMATION
  Report Type: Report from Study
  Country: CA (occurrence: CA)
  Receive Date: 20250311
  Receipt Date: 20250612
  Transmission Date: 20250716
  Serious: Yes (Hospitalization)
  Sender: ABBVIE
  Company Number: CA-ABBVIE-6163837

PATIENT
  Age: 70 Year
  Sex: Male

DRUGS (36)
  1. VENETOCLAX [Suspect]
     Active Substance: VENETOCLAX
     Indication: Acute myeloid leukaemia
     Dosage: REASON FOR ENDING THE TREATMENT DOSE: ADVERSE EVENT
     Route: 048
     Dates: start: 20240826, end: 20240827
  2. VENETOCLAX [Suspect]
     Active Substance: VENETOCLAX
     Indication: Acute myeloid leukaemia
     Dosage: OTHER (IF OTHER, SPECIFY: RAMP UP
     Route: 048
     Dates: start: 20240905, end: 20240905
  3. VENETOCLAX [Suspect]
     Active Substance: VENETOCLAX
     Indication: Acute myeloid leukaemia
     Dosage: END OF CYCLE
     Route: 048
     Dates: start: 20240906, end: 20241001
  4. VENETOCLAX [Suspect]
     Active Substance: VENETOCLAX
     Indication: Acute myeloid leukaemia
     Dosage: END OF CYCLE
     Route: 048
     Dates: start: 20241001, end: 20241028
  5. VENETOCLAX [Suspect]
     Active Substance: VENETOCLAX
     Indication: Acute myeloid leukaemia
     Dosage: END OF CYCLE
     Route: 048
     Dates: start: 20241112, end: 20241202
  6. VENETOCLAX [Suspect]
     Active Substance: VENETOCLAX
     Indication: Acute myeloid leukaemia
     Dosage: END OF CYCLE
     Route: 048
     Dates: start: 20241223, end: 20250112
  7. HYDROXYUREA [Concomitant]
     Active Substance: HYDROXYUREA
     Indication: Acute myeloid leukaemia
     Route: 065
     Dates: start: 20240817, end: 20240822
  8. LEVOFLOXACIN [Concomitant]
     Active Substance: LEVOFLOXACIN
     Indication: Pyrexia
     Route: 030
     Dates: start: 20240818, end: 20240827
  9. FAMOTIDINE [Concomitant]
     Active Substance: FAMOTIDINE
     Indication: Product used for unknown indication
     Route: 048
     Dates: start: 20240818, end: 20240913
  10. POTASSIUM [Concomitant]
     Active Substance: POTASSIUM
     Indication: Blood potassium decreased
     Route: 048
     Dates: start: 20240818, end: 20240913
  11. CALCIUM [Concomitant]
     Active Substance: CALCIUM
     Indication: Blood calcium decreased
     Route: 048
     Dates: start: 20240819, end: 20240913
  12. FLAGYL [Concomitant]
     Active Substance: METRONIDAZOLE\METRONIDAZOLE HYDROCHLORIDE
     Indication: Infection
     Route: 042
     Dates: start: 20240820, end: 20240823
  13. SUCRALFATE [Concomitant]
     Active Substance: SUCRALFATE
     Indication: Gastrointestinal haemorrhage
     Route: 048
     Dates: start: 20240821, end: 20241018
  14. IVERMECTIN [Concomitant]
     Active Substance: IVERMECTIN
     Indication: Strongyloidiasis
     Route: 048
     Dates: start: 20240823, end: 20240824
  15. PIPERACILLIN AND TAZOBACTAM [Concomitant]
     Active Substance: PIPERACILLIN SODIUM\TAZOBACTAM SODIUM
     Indication: Pyrexia
     Route: 042
     Dates: start: 20240827, end: 20240828
  16. ATROVENT [Concomitant]
     Active Substance: IPRATROPIUM BROMIDE
     Indication: Chronic obstructive pulmonary disease
     Dosage: 2 PUFFS
     Route: 048
     Dates: start: 20240827, end: 20240828
  17. MONTELUKAST [Concomitant]
     Active Substance: MONTELUKAST
     Indication: Rash
     Route: 048
     Dates: start: 20240828, end: 20240913
  18. CETIRIZINE [Concomitant]
     Active Substance: CETIRIZINE HYDROCHLORIDE
     Indication: Rash
     Route: 048
     Dates: start: 20240828, end: 20240913
  19. CALCIUM GLUCONATE [Concomitant]
     Active Substance: CALCIUM GLUCONATE
     Indication: Blood calcium decreased
     Route: 048
     Dates: start: 20240819, end: 20240819
  20. AZACITIDINE [Suspect]
     Active Substance: AZACITIDINE
     Indication: Acute myeloid leukaemia
     Dosage: END OF CYCLE
     Route: 065
     Dates: start: 20240826, end: 20240901
  21. AZACITIDINE [Suspect]
     Active Substance: AZACITIDINE
     Indication: Acute myeloid leukaemia
     Dosage: DOSE CHANGE/INTERRUPTION
     Route: 065
     Dates: start: 20241001, end: 20241004
  22. AZACITIDINE [Suspect]
     Active Substance: AZACITIDINE
     Indication: Acute myeloid leukaemia
     Dosage: END OF CYCLE
     Route: 065
     Dates: start: 20241007, end: 20241009
  23. AZACITIDINE [Suspect]
     Active Substance: AZACITIDINE
     Indication: Acute myeloid leukaemia
     Dosage: DOSE CHANGE/INTERRUPTION
     Route: 065
     Dates: start: 20241112, end: 20241115
  24. AZACITIDINE [Suspect]
     Active Substance: AZACITIDINE
     Indication: Acute myeloid leukaemia
     Dosage: END OF CYCLE
     Route: 065
     Dates: start: 20241118, end: 20241120
  25. AZACITIDINE [Suspect]
     Active Substance: AZACITIDINE
     Indication: Acute myeloid leukaemia
     Dosage: DOSE CHANGE/INTERRUPTION, OTHER (IF OTHER, SPECIFY: DOSE INTERRUPTION, NO WEEKEND CHEMO ADMINISTR...
     Route: 065
     Dates: start: 20241223, end: 20241224
  26. AZACITIDINE [Suspect]
     Active Substance: AZACITIDINE
     Indication: Acute myeloid leukaemia
     Dosage: DOSE CHANGE/INTERRUPTION
     Route: 065
     Dates: start: 20241227, end: 20241231
  27. AZACITIDINE [Suspect]
     Active Substance: AZACITIDINE
     Indication: Acute myeloid leukaemia
     Dosage: END OF CYCLE
     Route: 065
     Dates: start: 20250102, end: 20250103
  28. MAGNESIUM OXIDE [Concomitant]
     Active Substance: MAGNESIUM OXIDE
     Indication: Blood magnesium decreased
     Route: 048
     Dates: start: 20240818, end: 20240920
  29. PANTOPRAZOLE SODIUM [Concomitant]
     Active Substance: PANTOPRAZOLE SODIUM
     Indication: Gastrointestinal haemorrhage
     Route: 042
     Dates: start: 20240819, end: 20240822
  30. FILGRASTIM [Concomitant]
     Active Substance: FILGRASTIM
     Indication: Neutrophil count increased
     Dosage: 480 MCG
     Route: 048
     Dates: start: 20241101, end: 20241105
  31. ONDANSETRON [Concomitant]
     Active Substance: ONDANSETRON
     Indication: Chemotherapy side effect prophylaxis
     Route: 048
     Dates: start: 20240826, end: 20250103
  32. MEROPENEM [Concomitant]
     Active Substance: MEROPENEM
     Indication: Pyrexia
     Route: 048
     Dates: start: 20240828, end: 20240903
  33. TYLENOL [Concomitant]
     Active Substance: ACETAMINOPHEN
     Indication: Pyrexia
     Route: 048
     Dates: start: 20240825, end: 20240825
  34. MELATONIN [Concomitant]
     Active Substance: MELATONIN
     Indication: Sleep disorder therapy
     Route: 048
     Dates: start: 20240828, end: 20240828
  35. SENNA [Concomitant]
     Active Substance: SENNOSIDES
     Indication: Constipation
     Route: 048
     Dates: start: 20240913, end: 20240913
  36. METOCLOPRAMIDE HYDROCHLORIDE [Concomitant]
     Active Substance: METOCLOPRAMIDE HYDROCHLORIDE
     Indication: Nausea
     Route: 048
     Dates: start: 20240913

REACTIONS (1)
  - Disease progression [Recovered/Resolved]

NARRATIVE: CASE EVENT DATE: 20250127
